FAERS Safety Report 6370018-0 (Version None)
Quarter: 2009Q3

REPORT INFORMATION
  Report Type: 
  Country: None (occurrence: None)
  Receive Date: 20090923
  Receipt Date: 20070904
  Transmission Date: 20100115
  Serious: Yes (Other)
  Sender: FDA-Public Use
  Company Number: US-ASTRAZENECA-2006UW08255

PATIENT
  Sex: Female
  Weight: 49 kg

DRUGS (13)
  1. SEROQUEL [Suspect]
     Indication: DEPRESSION
     Dosage: 25 TO 200 MG
     Route: 048
     Dates: start: 20021007
  2. PROZAC [Concomitant]
     Route: 065
  3. ELAVIL [Concomitant]
     Route: 065
  4. WELLBUTRIN [Concomitant]
     Route: 065
  5. ZYPREXA [Concomitant]
     Route: 048
  6. METHYLIN ER [Concomitant]
     Route: 065
  7. DILANTIN [Concomitant]
     Route: 048
  8. ATENOLOL [Concomitant]
     Route: 048
  9. SPIRONOLACTONE [Concomitant]
     Route: 065
  10. PREVACID [Concomitant]
     Route: 065
  11. RANITIDINE [Concomitant]
     Route: 048
  12. FOSAMAX [Concomitant]
     Route: 065
  13. ZOLOFT [Concomitant]
     Route: 065

REACTIONS (1)
  - PANCREATITIS [None]
